FAERS Safety Report 5286414-9 (Version None)
Quarter: 2007Q2

REPORT INFORMATION
  Report Type: 
  Country: None (occurrence: None)
  Receive Date: 20070404
  Receipt Date: 20070326
  Transmission Date: 20071010
  Serious: Yes (Death)
  Sender: FDA-Public Use
  Company Number: US-ROCHE-483724

PATIENT
  Age: 39 Year
  Sex: Female
  Weight: 80.7 kg

DRUGS (15)
  1. TAMIFLU [Suspect]
     Route: 048
     Dates: start: 20070205
  2. VALIUM [Suspect]
     Indication: DRUG USE FOR UNKNOWN INDICATION
     Route: 065
  3. KLONOPIN [Suspect]
     Indication: DRUG USE FOR UNKNOWN INDICATION
     Route: 065
  4. NOCTEC [Suspect]
     Indication: INSOMNIA
     Route: 048
  5. BENADRYL [Suspect]
     Indication: DRUG USE FOR UNKNOWN INDICATION
     Route: 065
  6. ATIVAN [Suspect]
     Indication: DRUG USE FOR UNKNOWN INDICATION
     Route: 065
  7. SOMA [Suspect]
     Indication: DRUG USE FOR UNKNOWN INDICATION
     Route: 065
  8. ROBAXIN [Suspect]
     Indication: DRUG USE FOR UNKNOWN INDICATION
     Route: 065
  9. METHADONE HCL [Concomitant]
  10. NUTROPIN [Concomitant]
     Indication: WEIGHT CONTROL
     Dosage: INDICATION: SELF-TREATMENT FOR LONGEVITY AND WEIGHT CONTROL
     Route: 030
  11. VITAMIN B-12 [Concomitant]
     Indication: WEIGHT CONTROL
     Dosage: INDICATION: SELF-TREATMENT FOR LONGEVITY AND WEIGHT CONTROL
     Route: 030
  12. IMMUNOGLOBULIN INJECTABLE [Concomitant]
     Indication: WEIGHT CONTROL
     Dosage: INDICATION: SELF-TREATMENT FOR LONGETIVITY AND WEIGHT CONTROL
     Route: 030
  13. CIPRO [Concomitant]
     Indication: DRUG USE FOR UNKNOWN INDICATION
     Route: 048
  14. TOPAMAX [Concomitant]
     Indication: DRUG USE FOR UNKNOWN INDICATION
     Route: 065
  15. ACETAMINOPHEN [Concomitant]
     Indication: DRUG USE FOR UNKNOWN INDICATION
     Route: 065

REACTIONS (13)
  - CEREBRAL INFARCTION [None]
  - CONFUSIONAL STATE [None]
  - CONTUSION [None]
  - DEHYDRATION [None]
  - DRUG TOXICITY [None]
  - FALL [None]
  - GASTROENTERITIS VIRAL [None]
  - HEPATIC CONGESTION [None]
  - MYOCARDIAL FIBROSIS [None]
  - PANNICULITIS [None]
  - PLEURAL ADHESION [None]
  - SUBCUTANEOUS ABSCESS [None]
  - THYROIDITIS CHRONIC [None]
